FAERS Safety Report 15541604 (Version 1)
Quarter: 2018Q4

REPORT INFORMATION
  Report Type: Spontaneous
  Country: US (occurrence: US)
  Receive Date: 20181017
  Receipt Date: 20181017
  Transmission Date: 20190205
  Serious: Yes (Death, Hospitalization)
  Sender: FDA-Public Use
  Company Number: None

PATIENT
  Age: 81 Year
  Sex: Male
  Weight: 84.8 kg

DRUGS (1)
  1. DECITABINE (5-AZA2- DEOXYCYTIDINE) [Suspect]
     Active Substance: DECITABINE
     Indication: PRODUCT USED FOR UNKNOWN INDICATION
     Dates: end: 20180624

REACTIONS (4)
  - Liver abscess [None]
  - Mental status changes [None]
  - Febrile neutropenia [None]
  - Hepatic infection [None]

NARRATIVE: CASE EVENT DATE: 20180627
